FAERS Safety Report 9945071 (Version 1)
Quarter: 2014Q1

REPORT INFORMATION
  Report Type: Report from Study
  Country: US (occurrence: US)
  Receive Date: 20140303
  Receipt Date: 20140303
  Transmission Date: 20141002
  Serious: No
  Sender: FDA-Public Use
  Company Number: US-ABBVIE-13P-163-1055405-00

PATIENT
  Age: 49 Year
  Sex: Female

DRUGS (8)
  1. HUMIRA [Suspect]
     Indication: PSORIASIS
     Dates: start: 20121114
  2. DEPAKOTE [Concomitant]
     Indication: DEPRESSION
     Dosage: 100 MG DAILY
  3. DEPAKOTE [Concomitant]
     Indication: ANXIETY
  4. WELLBUTRIN [Concomitant]
     Indication: DEPRESSION
     Dosage: 150 MG DAILY
  5. WELLBUTRIN [Concomitant]
     Indication: ANXIETY
  6. AVEENO [Concomitant]
     Indication: PRODUCT USED FOR UNKNOWN INDICATION
  7. IBUPROFEN [Concomitant]
     Indication: PRODUCT USED FOR UNKNOWN INDICATION
  8. BANANA BOAT [Concomitant]
     Indication: SKIN DISORDER
     Dosage: SUNTAN LOTION WITH SPF 30
     Dates: start: 20130215

REACTIONS (3)
  - Sunburn [Not Recovered/Not Resolved]
  - Sunburn [Not Recovered/Not Resolved]
  - Joint swelling [Not Recovered/Not Resolved]
